APPROVED DRUG PRODUCT: ASENDIN
Active Ingredient: AMOXAPINE
Strength: 100MG
Dosage Form/Route: TABLET;ORAL
Application: N018021 | Product #003
Applicant: LEDERLE LABORATORIES DIV AMERICAN CYANAMID CO
Approved: Approved Prior to Jan 1, 1982 | RLD: No | RS: No | Type: DISCN